FAERS Safety Report 18214731 (Version 1)
Quarter: 2020Q3

REPORT INFORMATION
  Report Type: Spontaneous
  Country: BR (occurrence: BR)
  Receive Date: 20200831
  Receipt Date: 20200831
  Transmission Date: 20201103
  Serious: Yes (Death)
  Sender: FDA-Public Use
  Company Number: BR-BIOGEN-2020BI00916861

PATIENT
  Age: 1 Year

DRUGS (1)
  1. SPINRAZA [Suspect]
     Active Substance: NUSINERSEN
     Indication: SPINAL MUSCULAR ATROPHY
     Route: 037
     Dates: end: 20200823

REACTIONS (10)
  - Faecaloma [Fatal]
  - Vascular rupture [Fatal]
  - Cyanosis [Fatal]
  - Constipation [Fatal]
  - Shock [Fatal]
  - Bradycardia [Fatal]
  - Pallor [Fatal]
  - Haematemesis [Fatal]
  - Mechanical ventilation complication [Fatal]
  - Emphysema [Fatal]

NARRATIVE: CASE EVENT DATE: 20200817
